FAERS Safety Report 9126925 (Version 1)
Quarter: 2013Q1

REPORT INFORMATION
  Report Type: Spontaneous
  Country: FR (occurrence: FR)
  Receive Date: 20130122
  Receipt Date: 20130122
  Transmission Date: 20140127
  Serious: Yes (Hospitalization)
  Sender: FDA-Public Use
  Company Number: FR-TEVA-381136ISR

PATIENT
  Age: 58 Year
  Sex: Female
  Weight: 64 kg

DRUGS (7)
  1. ETOPOSIDE [Suspect]
     Indication: BRONCHIAL CARCINOMA
     Dosage: 13.3333 MILLIGRAM DAILY; DAY1 TO DAY5 - 2 COURSES
     Route: 041
     Dates: start: 20121022, end: 20121123
  2. CISPLATIN [Suspect]
     Indication: BRONCHIAL CARCINOMA
     Dosage: 5.8333 MILLIGRAM DAILY; DAY1 TO DAY5 - 2 COURSES
     Route: 041
     Dates: start: 20121022, end: 20121123
  3. TERNORMINE [Concomitant]
     Indication: HYPERTENSION
  4. LASILIX [Concomitant]
     Indication: HYPERTENSION
  5. PLAVIX [Concomitant]
  6. KARDEGIC [Concomitant]
  7. TAHOR [Concomitant]

REACTIONS (6)
  - Hypokalaemia [Unknown]
  - Iatrogenic injury [None]
  - Anaemia [Recovered/Resolved]
  - Thrombocytopenia [Recovered/Resolved]
  - Neutropenia [Recovered/Resolved]
  - Renal failure [Unknown]
